FAERS Safety Report 25360250 (Version 1)
Quarter: 2025Q2

REPORT INFORMATION
  Report Type: Spontaneous
  Country: SG (occurrence: SG)
  Receive Date: 20250527
  Receipt Date: 20250527
  Transmission Date: 20250717
  Serious: Yes (Other)
  Sender: ASTELLAS
  Company Number: SG-ASTELLAS-2025-AER-027979

PATIENT

DRUGS (1)
  1. VYLOY [Suspect]
     Active Substance: ZOLBETUXIMAB-CLZB
     Indication: Gastric cancer
     Route: 065

REACTIONS (1)
  - Cerebral venous sinus thrombosis [Unknown]

NARRATIVE: CASE EVENT DATE: 20250506
